FAERS Safety Report 4862734-4 (Version None)
Quarter: 2005Q4

REPORT INFORMATION
  Report Type: 
  Country: None (occurrence: None)
  Receive Date: 20051221
  Receipt Date: 20050914
  Transmission Date: 20060501
  Serious: Yes (Hospitalization, Disabling)
  Sender: FDA-Public Use
  Company Number: US-MERCK-0509USA02106

PATIENT
  Age: 81 Year
  Sex: Male
  Weight: 102 kg

DRUGS (3)
  1. VIOXX [Suspect]
     Indication: PAIN
     Route: 048
     Dates: start: 20031126, end: 20040501
  2. ASPIRIN [Concomitant]
     Route: 065
  3. DIGOXIN [Concomitant]
     Route: 065

REACTIONS (9)
  - ATRIAL FIBRILLATION [None]
  - BACK DISORDER [None]
  - BLOOD OSMOLARITY DECREASED [None]
  - CARDIOMEGALY [None]
  - CEREBROVASCULAR ACCIDENT [None]
  - HYPERTENSION [None]
  - LUNG DISORDER [None]
  - TRICUSPID VALVE INCOMPETENCE [None]
  - VENTRICULAR HYPERTROPHY [None]
